FAERS Safety Report 25874918 (Version 3)
Quarter: 2025Q4

REPORT INFORMATION
  Report Type: Report from Study
  Country: EU (occurrence: EU)
  Receive Date: 20251002
  Receipt Date: 20251112
  Transmission Date: 20260117
  Serious: Yes (Hospitalization)
  Sender: ABBVIE
  Company Number: EU-ABBVIE-6354442

PATIENT
  Age: 72 Year
  Sex: Female

DRUGS (28)
  1. FOSCARBIDOPA\FOSLEVODOPA [Suspect]
     Active Substance: FOSCARBIDOPA\FOSLEVODOPA
     Indication: Parkinson^s disease
     Dosage: LOW RATE INCREASED FROM 0.28 TO 0.30ML, BASE FROM 0.40 TO 0.42ML, HIGH FROM 0.43 TO 0.44ML
     Route: 058
     Dates: start: 20250925
  2. FOSCARBIDOPA\FOSLEVODOPA [Suspect]
     Active Substance: FOSCARBIDOPA\FOSLEVODOPA
     Dosage: 1 VIAL
     Route: 058
     Dates: start: 20250630, end: 20250701
  3. FOSCARBIDOPA\FOSLEVODOPA [Suspect]
     Active Substance: FOSCARBIDOPA\FOSLEVODOPA
     Dosage: HIGH RATE REDUCED FROM 0.34MLS TO 0.32ML?BASE RATE 0.29MLS-BASE RATE THROUGHOUT THE DAY
     Route: 058
     Dates: start: 20250701, end: 20250723
  4. FOSCARBIDOPA\FOSLEVODOPA [Suspect]
     Active Substance: FOSCARBIDOPA\FOSLEVODOPA
     Dosage: RATES INCREASED AS FOLLOWS ?LOW RATE FROM 0.20ML TO 0.22ML  BASE RATE FROM 0.28ML TO 0.32ML  HIGH...
     Route: 058
     Dates: start: 20250723, end: 20250805
  5. FOSCARBIDOPA\FOSLEVODOPA [Suspect]
     Active Substance: FOSCARBIDOPA\FOSLEVODOPA
     Dosage: LOW RATE INCREASED FROM 0.22ML TO 0.23ML ? BASE RATE INCREASED FROM 0.32ML TO 0.34ML ? HIGH RATE ...
     Route: 058
     Dates: start: 20250805, end: 20250811
  6. FOSCARBIDOPA\FOSLEVODOPA [Suspect]
     Active Substance: FOSCARBIDOPA\FOSLEVODOPA
     Dosage: LOW RATE INCREASED TO 0.25ML, ?BASE INCREASED TO 0.37ML AND? HIGH RATE INCREASED TO 0.39ML.
     Route: 058
     Dates: start: 20250811, end: 20250819
  7. FOSCARBIDOPA\FOSLEVODOPA [Suspect]
     Active Substance: FOSCARBIDOPA\FOSLEVODOPA
     Dosage: BASE RATE 0.37MLS INCREASED TO 0.39MLS.?HIGH RATE 0.39MLS INCREASED TO 0.40MLS.?LOW RATE LEFT UNT...
     Route: 058
     Dates: start: 20250819, end: 20250828
  8. FOSCARBIDOPA\FOSLEVODOPA [Suspect]
     Active Substance: FOSCARBIDOPA\FOSLEVODOPA
     Dosage: LOW INCREASED FROM 0.25ML TO 0.28ML? BASE INCREASED FROM 0.39ML TO 0.40ML ? HIGH RATE INCREASED F...
     Route: 058
     Dates: start: 20250828, end: 20250923
  9. FOSCARBIDOPA\FOSLEVODOPA [Suspect]
     Active Substance: FOSCARBIDOPA\FOSLEVODOPA
     Dosage: LOW RATE INCREASED FROM0.30 TO  0.32 ML. BASE RATE INCREASED FROM 0.42 TO 0.44ML. HIGH RATE INCRE...
     Route: 058
     Dates: start: 20251106
  10. CYCLIZINE [Concomitant]
     Active Substance: CYCLIZINE
     Indication: Product used for unknown indication
     Dosage: TIME INTERVAL: 0.33333333 DAYS: ROUTE: OTHER
  11. MIRABEGRON [Concomitant]
     Active Substance: MIRABEGRON
     Indication: Product used for unknown indication
     Dosage: ROUTE: OTHER
  12. CALCIUM\CHOLECALCIFEROL [Concomitant]
     Active Substance: CALCIUM\CHOLECALCIFEROL
     Indication: Product used for unknown indication
     Dosage: ROUTE: OTHER
  13. DULOXETINE [Concomitant]
     Active Substance: DULOXETINE
     Indication: Product used for unknown indication
     Dosage: ROUTE: OTHER
  14. Etoflam [Concomitant]
     Indication: Product used for unknown indication
     Dosage: ROUTE: OTHER
  15. Hylo forte [Concomitant]
     Indication: Product used for unknown indication
     Dosage: ROUTE: OTHER?( BOTH EYES)
  16. LYRICA [Concomitant]
     Active Substance: PREGABALIN
     Indication: Product used for unknown indication
     Dosage: ROUTE: OTHER
  17. MIDODRINE [Concomitant]
     Active Substance: MIDODRINE
     Indication: Product used for unknown indication
     Dosage: TIME INTERVAL: 0.33333333 DAYS: ROUTE: OTHER
  18. MOVICOL [Concomitant]
     Active Substance: POLYETHYLENE GLYCOL 3350\POTASSIUM CHLORIDE\SODIUM BICARBONATE\SODIUM CHLORIDE
     Indication: Product used for unknown indication
     Dosage: ROUTE: OTHER
  19. NEUPRO [Concomitant]
     Active Substance: ROTIGOTINE
     Indication: Product used for unknown indication
     Dosage: ROUTE: OTHER
  20. NEUPRO [Concomitant]
     Active Substance: ROTIGOTINE
     Indication: Product used for unknown indication
     Dosage: ROUTE: OTHER
  21. PANTOPRAZOLE [Concomitant]
     Active Substance: PANTOPRAZOLE
     Indication: Product used for unknown indication
     Dosage: ROUTE: OTHER
  22. PREGABALIN [Concomitant]
     Active Substance: PREGABALIN
     Indication: Product used for unknown indication
     Dosage: 8AM AND 2PM?ROUTE: OTHER
  23. SINEMET [Concomitant]
     Active Substance: CARBIDOPA\LEVODOPA
     Indication: Product used for unknown indication
     Dosage: 50.2 MG?CONTROLLED RELEASE?ROUTE: OTHER
  24. CARBIDOPA\LEVODOPA [Concomitant]
     Active Substance: CARBIDOPA\LEVODOPA
     Indication: Product used for unknown indication
     Dosage: DOSE: 25.1 MG?ROUTE: OTHER? X 2 AT 8
  25. CARBIDOPA\LEVODOPA [Concomitant]
     Active Substance: CARBIDOPA\LEVODOPA
     Indication: Product used for unknown indication
     Dosage: ROUTE: OTHER?X1 AT 10.30/1.30/5/8
  26. CARBOMER [Concomitant]
     Active Substance: CARBOMER
     Indication: Product used for unknown indication
     Dosage: ROUTE: OTHER
  27. WARFARIN [Concomitant]
     Active Substance: WARFARIN
     Indication: Product used for unknown indication
     Dosage: ROUTE: OTHER
  28. BENSERAZIDE HYDROCHLORIDE\LEVODOPA [Concomitant]
     Active Substance: BENSERAZIDE HYDROCHLORIDE\LEVODOPA
     Indication: Product used for unknown indication
     Dosage: 50.125 MG?ROUTE: OTHER?AT 6/7 AM

REACTIONS (27)
  - Full blood count decreased [Unknown]
  - Bradykinesia [Not Recovered/Not Resolved]
  - Asthenia [Unknown]
  - Device issue [Unknown]
  - Tremor [Not Recovered/Not Resolved]
  - Limb discomfort [Unknown]
  - Gait inability [Unknown]
  - Muscular weakness [Unknown]
  - Freezing phenomenon [Recovered/Resolved]
  - Gait disturbance [Not Recovered/Not Resolved]
  - Poor quality sleep [Recovered/Resolved]
  - On and off phenomenon [Not Recovered/Not Resolved]
  - Therapeutic product effect incomplete [Not Recovered/Not Resolved]
  - Dystonia [Unknown]
  - Mobility decreased [Recovering/Resolving]
  - Drug ineffective [Recovered/Resolved]
  - Reduced facial expression [Recovered/Resolved]
  - Bradykinesia [Unknown]
  - Rapid eye movement sleep behaviour disorder [Unknown]
  - Sleep talking [Unknown]
  - Freezing phenomenon [Not Recovered/Not Resolved]
  - Balance disorder [Unknown]
  - Poor quality sleep [Recovered/Resolved]
  - Dizziness [Not Recovered/Not Resolved]
  - Fatigue [Unknown]
  - Emotional disorder [Unknown]
  - Tearfulness [Unknown]

NARRATIVE: CASE EVENT DATE: 20250101
